FAERS Safety Report 24575840 (Version 1)
Quarter: 2024Q4

REPORT INFORMATION
  Report Type: Spontaneous
  Country: US (occurrence: None)
  Receive Date: 20241102
  Receipt Date: 20241102
  Transmission Date: 20250114
  Serious: Yes (Hospitalization)
  Sender: Public
  Company Number: None

PATIENT
  Sex: Female

DRUGS (1)
  1. MYCOPHENOLIC ACID [Suspect]
     Active Substance: MYCOPHENOLIC ACID
     Indication: Product used for unknown indication
     Dosage: FREQ: TAKE 3 TABLETS BY  MOUTH TWICE DAILY?
     Route: 048
     Dates: start: 20200709

REACTIONS (2)
  - Disease complication [None]
  - Pneumonia [None]
